FAERS Safety Report 6259925-7 (Version None)
Quarter: 2009Q3

REPORT INFORMATION
  Report Type: 
  Country: None (occurrence: None)
  Receive Date: 20090708
  Receipt Date: 20090703
  Transmission Date: 20100115
  Serious: Yes (Life-Threatening, Hospitalization, Other)
  Sender: FDA-Public Use
  Company Number: PHHY2009DE27311

PATIENT
  Age: 78 Year
  Sex: Male
  Weight: 75 kg

DRUGS (16)
  1. VOLTAREN [Suspect]
     Indication: INTERVERTEBRAL DISC PROTRUSION
     Dosage: 100 MG, QD
     Route: 054
     Dates: start: 20090302, end: 20090314
  2. DICLOFENAC RATIOPHARM RAPID [Suspect]
     Indication: INTERVERTEBRAL DISC PROTRUSION
     Dosage: 100 MG, QD
     Route: 048
     Dates: start: 20090302, end: 20090314
  3. CARBOSTESIN [Suspect]
     Indication: INTERVERTEBRAL DISC PROTRUSION
     Dosage: 5 MG, ONCE/SINGLE
     Route: 008
     Dates: start: 20090416
  4. CARBOSTESIN [Suspect]
     Dosage: 5 MG, ONCE/SINGLE
     Route: 008
     Dates: start: 20090430
  5. CARBOSTESIN [Suspect]
     Dosage: 5 MG, ONCE/SINGLE
     Route: 008
     Dates: end: 20090507
  6. ISOVIST [Suspect]
     Indication: INTERVERTEBRAL DISC PROTRUSION
     Dosage: 1 DF, ONCE/SINGLE
     Route: 008
     Dates: start: 20090416
  7. ISOVIST [Suspect]
     Dosage: 1 DF, ONCE/SINGLE
     Route: 008
     Dates: start: 20090430
  8. ISOVIST [Suspect]
     Dosage: 1 DF, ONCE/SINGLE
     Route: 008
     Dates: end: 20090507
  9. BEPANTHEN [Concomitant]
     Indication: NASAL DISCOMFORT
     Dosage: 3-4 TIMES WEEKLY
     Route: 045
     Dates: start: 19790101, end: 20090513
  10. HYALASE [Concomitant]
     Indication: INTERVERTEBRAL DISC PROTRUSION
     Dosage: 300 IU, ONCE/SINGLE
     Route: 008
     Dates: start: 20090416
  11. HYALASE [Concomitant]
     Dosage: 300 IU, ONCE/SINGLE
     Route: 008
     Dates: start: 20090430
  12. HYALASE [Concomitant]
     Dosage: 300 IU, ONCE/SINGLE
     Route: 008
     Dates: end: 20090507
  13. LIPOTALON [Concomitant]
     Indication: INTERVERTEBRAL DISC PROTRUSION
     Dosage: 4 MG, ONCE/SINGLE
     Route: 008
     Dates: start: 20090416
  14. LIPOTALON [Concomitant]
     Dosage: 4 MG, ONCE/SINGLE
     Route: 008
     Dates: start: 20090430
  15. LIPOTALON [Concomitant]
     Dosage: 4 MG, ONCE/SINGLE
     Route: 008
     Dates: end: 20090507
  16. SIMVASTATIN [Concomitant]
     Indication: HYPERCHOLESTEROLAEMIA
     Dosage: 20 MG, QD
     Route: 048
     Dates: start: 20070101, end: 20090512

REACTIONS (2)
  - AUTOIMMUNE THROMBOCYTOPENIA [None]
  - DEEP VEIN THROMBOSIS [None]
